FAERS Safety Report 7003598-2 (Version None)
Quarter: 2010Q3

REPORT INFORMATION
  Report Type: 
  Country: None (occurrence: None)
  Receive Date: 20100916
  Receipt Date: 20100909
  Transmission Date: 20110219
  Serious: Yes (Hospitalization)
  Sender: FDA-Public Use
  Company Number: 692374

PATIENT
  Sex: Male

DRUGS (8)
  1. PENTOSTATIN [Suspect]
     Indication: LEUKAEMIA
     Dosage: 8 MG MILLIGRAM(S) INTRAVENOUS
     Route: 042
     Dates: start: 20100601
  2. (ZELITREX /(01269701/) [Concomitant]
  3. (INEXIUM	/01479302/) [Concomitant]
  4. FUNGIZONE [Concomitant]
  5. (DIFFU K) [Concomitant]
  6. (PRIMPERAN   /00091901/) [Concomitant]
  7. (SPASFON /00765801/) [Concomitant]
  8. (PARACETAMOL) [Concomitant]

REACTIONS (8)
  - CHEST PAIN [None]
  - CONJUNCTIVITIS [None]
  - DERMATITIS BULLOUS [None]
  - DYSPNOEA [None]
  - HAEMOPTYSIS [None]
  - PANCYTOPENIA [None]
  - SKIN NECROSIS [None]
  - TACHYCARDIA [None]
